FAERS Safety Report 4499968-7 (Version None)
Quarter: 2004Q4

REPORT INFORMATION
  Report Type: 
  Country: None (occurrence: None)
  Receive Date: 20041112
  Receipt Date: 20041021
  Transmission Date: 20050328
  Serious: Yes (Hospitalization)
  Sender: FDA-Public Use
  Company Number: US-MERCK-0410USA03387M

PATIENT
  Age: 31 Year
  Sex: Female

DRUGS (7)
  1. VIOXX [Suspect]
     Indication: FOOT FRACTURE
     Route: 048
     Dates: start: 19990101, end: 20000101
  2. VIOXX [Suspect]
     Route: 048
     Dates: start: 20010503, end: 20040930
  3. VIOXX [Suspect]
     Indication: ANKLE FRACTURE
     Route: 048
     Dates: start: 19990101, end: 20000101
  4. VIOXX [Suspect]
     Route: 048
     Dates: start: 20010503, end: 20040930
  5. VICODIN [Concomitant]
     Route: 065
  6. ANALGESIC OR ANESTHETIC (UNSPECIFIED) [Concomitant]
     Route: 065
  7. ANTIMICROBIAL (UNSPECIFIED) [Concomitant]
     Route: 065

REACTIONS (2)
  - DRUG EXPOSURE DURING PREGNANCY [None]
  - POSTOPERATIVE INFECTION [None]
